FAERS Safety Report 23017638 (Version 1)
Quarter: 2023Q4

REPORT INFORMATION
  Report Type: Spontaneous
  Country: JP (occurrence: JP)
  Receive Date: 20231003
  Receipt Date: 20231003
  Transmission Date: 20240110
  Serious: Yes (Hospitalization, Other)
  Sender: FDA-Public Use
  Company Number: JP-CELLTRION INC.-2023JP018889

PATIENT

DRUGS (4)
  1. TRASTUZUMAB [Suspect]
     Active Substance: TRASTUZUMAB
     Indication: Breast cancer
     Dosage: UNK
     Route: 042
  2. PACLITAXEL [Suspect]
     Active Substance: PACLITAXEL
     Indication: Breast cancer
     Dosage: 100MG/16.7ML, PRN
     Route: 042
  3. HERCEPTIN [Suspect]
     Active Substance: TRASTUZUMAB
     Indication: Breast cancer
     Dosage: UNK
     Route: 065
  4. DOXIFLURIDINE [Suspect]
     Active Substance: DOXIFLURIDINE
     Indication: Breast cancer recurrent
     Dosage: UNK
     Route: 065

REACTIONS (2)
  - Fanconi syndrome acquired [Recovering/Resolving]
  - Fanconi syndrome acquired [Recovering/Resolving]
